FAERS Safety Report 9116795 (Version 4)
Quarter: 2013Q1

REPORT INFORMATION
  Report Type: Report from Study
  Country: BE (occurrence: BE)
  Receive Date: 20130225
  Receipt Date: 20130313
  Transmission Date: 20140127
  Serious: Yes (Hospitalization)
  Sender: FDA-Public Use
  Company Number: BE-SANOFI-AVENTIS-2013SA015921

PATIENT
  Age: 68 Year
  Sex: Male
  Weight: 62 kg

DRUGS (18)
  1. CABAZITAXEL [Suspect]
     Indication: PROSTATE CANCER METASTATIC
     Route: 042
     Dates: start: 20130118, end: 20130118
  2. CABAZITAXEL [Suspect]
     Indication: PROSTATE CANCER METASTATIC
     Route: 042
     Dates: start: 20130208, end: 20130208
  3. PREDNISONE [Suspect]
     Indication: PROSTATE CANCER METASTATIC
     Route: 048
     Dates: start: 20130118, end: 20130214
  4. FRAXODI [Concomitant]
     Indication: PROPHYLAXIS
     Route: 058
     Dates: start: 20120223, end: 20130214
  5. SOFTENE [Concomitant]
     Route: 048
     Dates: start: 20121001, end: 20130213
  6. MOVICOL [Concomitant]
     Route: 048
     Dates: start: 20121001, end: 20130213
  7. XGEVA [Concomitant]
     Indication: PROPHYLAXIS
     Route: 058
     Dates: start: 20120813
  8. MS CONTIN [Concomitant]
     Route: 048
     Dates: start: 201208, end: 20130214
  9. MORPHINE [Concomitant]
     Route: 048
     Dates: start: 201208, end: 20130214
  10. STEOVIT D3 [Concomitant]
     Indication: PROPHYLAXIS
     Route: 048
     Dates: start: 201208, end: 20130213
  11. ZOPICLONE [Concomitant]
     Route: 048
     Dates: start: 20121215, end: 20130214
  12. BISOPROLOL [Concomitant]
     Route: 048
     Dates: start: 200701, end: 20130214
  13. OMEPRAZOLE [Concomitant]
     Indication: PROPHYLAXIS
     Route: 048
     Dates: start: 20120405, end: 20130214
  14. ELIGARD [Concomitant]
     Route: 058
     Dates: start: 20120302
  15. MOTILIUM [Concomitant]
     Route: 048
     Dates: start: 20121219, end: 20130214
  16. LITICAN [Concomitant]
     Route: 048
     Dates: start: 20130118, end: 20130214
  17. SOLUMEDROL [Concomitant]
     Route: 042
     Dates: start: 20130208, end: 20130208
  18. POLARAMINE [Concomitant]
     Route: 042
     Dates: start: 20130208, end: 20130208

REACTIONS (1)
  - Large intestine perforation [Recovered/Resolved]
